FAERS Safety Report 19374951 (Version 1)
Quarter: 2021Q2

REPORT INFORMATION
  Report Type: Spontaneous
  Country: GB (occurrence: GB)
  Receive Date: 20210604
  Receipt Date: 20210604
  Transmission Date: 20210717
  Serious: Yes (Other)
  Sender: FDA-Public Use
  Company Number: GB-JNJFOC-20210555941

PATIENT
  Age: 50 Year
  Sex: Male

DRUGS (2)
  1. REMICADE [Suspect]
     Active Substance: INFLIXIMAB
     Indication: CROHN^S DISEASE
     Route: 042
  2. REMSIMA [Suspect]
     Active Substance: INFLIXIMAB
     Indication: CROHN^S DISEASE
     Dosage: 120 MG, FREQUENCY OF 2/52 (2/52 REFERS TO FORTNIGHTLY)
     Route: 058
     Dates: start: 20210414

REACTIONS (6)
  - Sinusitis [Not Recovered/Not Resolved]
  - Therapeutic response shortened [Not Recovered/Not Resolved]
  - COVID-19 [Not Recovered/Not Resolved]
  - Therapy change [Unknown]
  - Tendonitis [Not Recovered/Not Resolved]
  - Folliculitis [Not Recovered/Not Resolved]
